FAERS Safety Report 25959545 (Version 1)
Quarter: 2025Q4

REPORT INFORMATION
  Report Type: Spontaneous
  Country: US (occurrence: US)
  Receive Date: 20251026
  Receipt Date: 20251026
  Transmission Date: 20260117
  Serious: No
  Sender: CELLTRION
  Company Number: US-CELLTRION INC.-2024US030276

PATIENT

DRUGS (1)
  1. INFLECTRA [Suspect]
     Active Substance: INFLIXIMAB-DYYB
     Indication: Colitis ulcerative
     Dosage: 577 MG, ONCE, ADMINISTERED OVER 120 MINUTES (ORDERED DOSE: 10 MG/KG X 57.7 KG; ADMIN INSTRUCTIONS: U
     Route: 042
     Dates: start: 20241126

REACTIONS (1)
  - Overdose [Unknown]
